FAERS Safety Report 5702607-8 (Version None)
Quarter: 2008Q2

REPORT INFORMATION
  Report Type: 
  Country: None (occurrence: None)
  Receive Date: 20080411
  Receipt Date: 20080401
  Transmission Date: 20081010
  Serious: Yes (Hospitalization)
  Sender: FDA-Public Use
  Company Number: US-ELI_LILLY_AND_COMPANY-US200804000258

PATIENT
  Sex: Female

DRUGS (1)
  1. HUMATROPE [Suspect]
     Dosage: UNK, UNKNOWN
     Dates: start: 20040101

REACTIONS (6)
  - ALOPECIA [None]
  - CARDIAC DISORDER [None]
  - CHEST PAIN [None]
  - HAIR GROWTH ABNORMAL [None]
  - MUSCULOSKELETAL PAIN [None]
  - NERVOUSNESS [None]
